FAERS Safety Report 5511573-X (Version None)
Quarter: 2007Q4

REPORT INFORMATION
  Report Type: 
  Country: None (occurrence: None)
  Receive Date: 20071109
  Receipt Date: 20071101
  Transmission Date: 20080405
  Serious: Yes (Other)
  Sender: FDA-Public Use
  Company Number: IE-ABBOTT-07P-229-0423244-00

PATIENT
  Age: 40 Year
  Sex: Female

DRUGS (2)
  1. HUMIRA [Suspect]
     Indication: CROHN'S DISEASE
     Dates: start: 20070901
  2. ISONIAZID [Concomitant]
     Indication: LATENT TUBERCULOSIS
     Dates: start: 20070901

REACTIONS (1)
  - MYDRIASIS [None]
